FAERS Safety Report 7540871-3 (Version None)
Quarter: 2011Q2

REPORT INFORMATION
  Report Type: 
  Country: None (occurrence: None)
  Receive Date: 20110610
  Receipt Date: 20110601
  Transmission Date: 20111010
  Serious: Yes (Hospitalization, Other)
  Sender: FDA-Public Use
  Company Number: US-AMGEN-USACT2011022466

PATIENT
  Age: 68 Year
  Sex: Male
  Weight: 70.45 kg

DRUGS (5)
  1. CISPLATIN [Concomitant]
     Dosage: 40 MG/M2, Q2WK
     Route: 042
     Dates: start: 20101214
  2. BLOOD CELLS, PACKED HUMAN [Concomitant]
     Dosage: UNK
     Dates: start: 20110330, end: 20110421
  3. PANITUMUMAB [Suspect]
     Indication: OESOPHAGEAL ADENOCARCINOMA
     Dosage: 6 MG/KG, Q2WK
     Route: 042
     Dates: start: 20101214
  4. ANTIBIOTICS [Concomitant]
  5. DOCETAXEL [Concomitant]
     Dosage: 40 MG/M2, Q2WK
     Route: 042
     Dates: start: 20101214

REACTIONS (15)
  - HYPOPHOSPHATAEMIA [None]
  - PNEUMOTHORAX [None]
  - PLEURAL EFFUSION [None]
  - LYMPHOCYTE COUNT DECREASED [None]
  - HYPOCALCAEMIA [None]
  - SINUS TACHYCARDIA [None]
  - MEDIASTINITIS [None]
  - HYPOXIA [None]
  - ACTIVATED PARTIAL THROMBOPLASTIN TIME PROLONGED [None]
  - BLOOD CREATININE INCREASED [None]
  - GASTROINTESTINAL NECROSIS [None]
  - ALKALOSIS [None]
  - ANAEMIA [None]
  - HYPOKALAEMIA [None]
  - HYPOALBUMINAEMIA [None]
